FAERS Safety Report 12115118 (Version 1)
Quarter: 2016Q1

REPORT INFORMATION
  Report Type: Spontaneous
  Country: US (occurrence: None)
  Receive Date: 20160224
  Receipt Date: 20160224
  Transmission Date: 20160526
  Serious: No
  Sender: FDA-Public Use
  Company Number: None

PATIENT
  Age: 66 Year
  Sex: Female
  Weight: 49.9 kg

DRUGS (5)
  1. LATANOPROST. [Concomitant]
     Active Substance: LATANOPROST
  2. PREDNISONE. [Concomitant]
     Active Substance: PREDNISONE
  3. DORZOLAMIDE HCI WATSON PHARMA INC. [Suspect]
     Active Substance: DORZOLAMIDE HYDROCHLORIDE
     Indication: GLAUCOMA
     Dosage: 1 DROP IN EACH EYE 3 X DAY
     Dates: start: 20150820, end: 20160212
  4. ATENOLOL. [Concomitant]
     Active Substance: ATENOLOL
  5. CALCIUM W/VIT D3 [Concomitant]

REACTIONS (5)
  - Foreign body sensation in eyes [None]
  - Product container seal issue [None]
  - Product container issue [None]
  - Eye irritation [None]
  - Ocular hyperaemia [None]

NARRATIVE: CASE EVENT DATE: 20160120
